FAERS Safety Report 10248987 (Version 2)
Quarter: 2014Q2

REPORT INFORMATION
  Report Type: Spontaneous
  Country: DK (occurrence: None)
  Receive Date: 20140618
  Receipt Date: 20140624
  Transmission Date: 20141212
  Serious: Yes (Hospitalization, Other)
  Sender: FDA-Public Use
  Company Number: AUR-APL-2014-06379

PATIENT
  Sex: Female
  Weight: 60 kg

DRUGS (16)
  1. SIMVASTATIN [Suspect]
     Indication: CARDIOVASCULAR DISORDER
     Route: 048
     Dates: start: 20120921
  2. PANTOPRAZOLE [Suspect]
     Indication: GASTROOESOPHAGEAL REFLUX DISEASE
     Route: 048
     Dates: start: 20130302
  3. NITROFURANTOIN [Suspect]
     Indication: PROPHYLAXIS URINARY TRACT INFECTION
     Route: 048
     Dates: start: 20120921
  4. ABILIFY [Suspect]
     Indication: SCHIZOPHRENIA
     Route: 048
     Dates: start: 20130217, end: 20130317
  5. ELTROXIN [Suspect]
     Indication: MYXOEDEMA
     Route: 048
     Dates: start: 20120921
  6. LISINOPRIL [Suspect]
     Indication: HYPERTENSION
     Route: 048
     Dates: start: 20120925
  7. LACTULOSE [Suspect]
     Indication: CONSTIPATION
     Dates: start: 20130302
  8. HJERTEMAGNYL [Suspect]
     Indication: THROMBOSIS PROPHYLAXIS
     Route: 048
     Dates: start: 20120921
  9. OXAZEPAM [Suspect]
     Indication: RESTLESSNESS
     Route: 048
     Dates: start: 20130302
  10. PENOMAX [Suspect]
     Indication: INFECTION
     Route: 048
     Dates: start: 20130306, end: 20130309
  11. PERSANTINE RETARD [Suspect]
     Indication: THROMBOSIS PROPHYLAXIS
     Route: 048
     Dates: start: 20120921
  12. PINEX [Suspect]
     Indication: PAIN
     Route: 048
     Dates: start: 20130302
  13. SERENASE [Suspect]
     Indication: MENTAL DISORDER
     Route: 048
     Dates: start: 20120921
  14. TRADOLAN (TRAMADOL HYDROCHLORIDE) [Concomitant]
  15. IMOCLONE (ZOPICLONE) [Concomitant]
  16. MULTIVITAMINS (ASCORBIC ACID, ERGOCALCIFEROL, FOLIC ACID, NICOTINAMIDE, PANTHENOL, RETINOL, RIBOFLAVIN, THIAMINE HYDROCHLORIDE) [Concomitant]

REACTIONS (4)
  - Constipation [None]
  - Cerebral thrombosis [None]
  - Strawberry tongue [None]
  - Pneumonia [None]
